FAERS Safety Report 7694584-8 (Version None)
Quarter: 2011Q3

REPORT INFORMATION
  Report Type: 
  Country: None (occurrence: None)
  Receive Date: 20110816
  Receipt Date: 20110808
  Transmission Date: 20111222
  Serious: Yes (Hospitalization)
  Sender: FDA-Public Use
  Company Number: 2010SP012807

PATIENT
  Age: 31 Year
  Sex: Female
  Weight: 54.4316 kg

DRUGS (2)
  1. NUVARING [Suspect]
     Indication: CONTRACEPTION
     Dates: start: 20071120, end: 20080301
  2. LEXAPRO [Concomitant]

REACTIONS (17)
  - MEDICAL DEVICE COMPLICATION [None]
  - PULMONARY OEDEMA [None]
  - PULMONARY EMBOLISM [None]
  - SUICIDE ATTEMPT [None]
  - ANXIETY [None]
  - AFFECTIVE DISORDER [None]
  - PNEUMONITIS [None]
  - PLEURAL EFFUSION [None]
  - DISEASE RECURRENCE [None]
  - ANGER [None]
  - MAJOR DEPRESSION [None]
  - DYSPAREUNIA [None]
  - MYALGIA [None]
  - INJURY [None]
  - INTENTIONAL SELF-INJURY [None]
  - OBSESSIVE-COMPULSIVE DISORDER [None]
  - RHINITIS ALLERGIC [None]
